FAERS Safety Report 7339704-X (Version None)
Quarter: 2011Q1

REPORT INFORMATION
  Report Type: 
  Country: None (occurrence: None)
  Receive Date: 20110309
  Receipt Date: 20110224
  Transmission Date: 20110831
  Serious: Yes (Other)
  Sender: FDA-Public Use
  Company Number: US-ELI_LILLY_AND_COMPANY-US201103000066

PATIENT
  Sex: Female

DRUGS (6)
  1. METFORMIN [Concomitant]
     Dates: end: 20101001
  2. KEFLEX [Concomitant]
     Indication: NEUROGENIC BLADDER
     Dosage: 250 UG, DAILY (1/D)
  3. BYETTA [Suspect]
     Dosage: UNK, UNKNOWN
     Dates: end: 20100901
  4. HUMALOG [Concomitant]
     Dosage: 10 U, 3/D
     Dates: start: 20100901
  5. HUMALOG [Concomitant]
     Dosage: 30 U, EACH EVENING
     Dates: start: 20101001
  6. LEVOTHYROXINE SODIUM [Concomitant]
     Dosage: 150 UG, DAILY (1/D)

REACTIONS (3)
  - DRUG EXPOSURE DURING PREGNANCY [None]
  - PLACENTA PRAEVIA [None]
  - SKIN ULCER [None]
